FAERS Safety Report 9828087 (Version 2)
Quarter: 2014Q1

REPORT INFORMATION
  Report Type: Spontaneous
  Country: US (occurrence: US)
  Receive Date: 20140117
  Receipt Date: 20140117
  Transmission Date: 20141002
  Serious: Yes (Other)
  Sender: FDA-Public Use
  Company Number: US-BMSGILMSD-2010-0032348

PATIENT
  Age: 56 Year
  Sex: Female
  Weight: 48.53 kg

DRUGS (8)
  1. ATRIPLA [Suspect]
     Indication: HIV INFECTION
     Route: 048
     Dates: start: 20081113, end: 20100729
  2. CYPROHEPTADINE [Concomitant]
     Indication: HYPERSENSITIVITY
     Dates: start: 20090804
  3. HYDROCODONE W/APAP [Concomitant]
     Indication: PAIN
     Dates: start: 20090512
  4. DIAZEPAM [Concomitant]
     Indication: ANXIETY
     Dates: start: 20090611
  5. IBUPROFEN [Concomitant]
     Indication: PAIN
     Dates: start: 20090512
  6. FOSAMAX [Concomitant]
     Indication: OSTEOPOROSIS
     Dates: start: 20090901
  7. LISINOPRIL [Concomitant]
     Indication: HYPERTENSION
     Dates: start: 20091124
  8. PRAVASTATIN [Concomitant]
     Indication: HYPERCHOLESTEROLAEMIA
     Dates: start: 20100126

REACTIONS (6)
  - Fanconi syndrome acquired [Recovering/Resolving]
  - Hypophosphataemia [Recovering/Resolving]
  - Acidosis [Recovering/Resolving]
  - Glycosuria [Recovering/Resolving]
  - Aminoaciduria [Recovering/Resolving]
  - Renal failure [Recovering/Resolving]
